FAERS Safety Report 4389856-9 (Version None)
Quarter: 2004Q2

REPORT INFORMATION
  Report Type: 
  Country: None (occurrence: None)
  Receive Date: 20040628
  Receipt Date: 20040610
  Transmission Date: 20050107
  Serious: Yes (Other)
  Sender: FDA-Public Use
  Company Number: 24356

PATIENT
  Age: 50 Year
  Sex: Male

DRUGS (1)
  1. ALDARA [Suspect]
     Indication: LYMPHOMA
     Dosage: (0.5 SACHET, 1 IN 1 DAY (S)), TOPICAL
     Route: 061
     Dates: start: 20040101, end: 20040101

REACTIONS (3)
  - APPLICATION SITE ULCER [None]
  - LYMPHOMA [None]
  - MALIGNANT NEOPLASM PROGRESSION [None]
